FAERS Safety Report 9639003 (Version 1)
Quarter: 2013Q4

REPORT INFORMATION
  Report Type: Spontaneous
  Country: DK (occurrence: DK)
  Receive Date: 20131022
  Receipt Date: 20131022
  Transmission Date: 20140711
  Serious: Yes (Life-Threatening, Hospitalization, Disabling)
  Sender: FDA-Public Use
  Company Number: DK-JNJFOC-20131010072

PATIENT
  Age: 71 Year
  Sex: Male
  Weight: 75 kg

DRUGS (7)
  1. ZYTIGA [Suspect]
     Indication: PROSTATE CANCER METASTATIC
     Route: 048
     Dates: start: 20130515, end: 20130902
  2. PAMOL [Concomitant]
     Indication: PAIN
     Route: 048
     Dates: start: 2012
  3. AMLODIPINE [Concomitant]
     Indication: HYPERTENSION
     Route: 065
     Dates: start: 2010
  4. UNIKALK BASIC [Concomitant]
     Indication: SUPPLEMENTATION THERAPY
     Route: 065
  5. IRON [Concomitant]
     Indication: PRODUCT USED FOR UNKNOWN INDICATION
     Route: 065
  6. PREDNISOLONE [Concomitant]
     Indication: SUPPLEMENTATION THERAPY
     Route: 048
     Dates: start: 20130515
  7. CENTYL MED KALIUMKLORID [Concomitant]
     Indication: HYPERTENSION
     Route: 065
     Dates: start: 2010

REACTIONS (5)
  - Oxygen saturation decreased [Recovering/Resolving]
  - Dehydration [Recovered/Resolved]
  - Pulmonary embolism [Recovering/Resolving]
  - Hypotension [Recovering/Resolving]
  - Malaise [Recovering/Resolving]
